FAERS Safety Report 25169504 (Version 2)
Quarter: 2025Q2

REPORT INFORMATION
  Report Type: Report from Study
  Country: JP (occurrence: JP)
  Receive Date: 20250407
  Receipt Date: 20250527
  Transmission Date: 20250717
  Serious: Yes (Hospitalization, Other)
  Sender: UCB
  Company Number: JP-UCBJ-CD202401996UCBPHAPROD

PATIENT
  Age: 70 Year
  Sex: Female
  Weight: 59 kg

DRUGS (13)
  1. ZILUCOPLAN [Suspect]
     Active Substance: ZILUCOPLAN
     Indication: Myasthenia gravis
     Route: 058
     Dates: start: 20240222, end: 20240222
  2. ZILUCOPLAN [Suspect]
     Active Substance: ZILUCOPLAN
     Route: 058
     Dates: start: 20240223, end: 20250302
  3. VENOGLOBULIN [Concomitant]
     Active Substance: HUMAN IMMUNOGLOBULIN G
     Indication: Myasthenia gravis
     Dosage: 20 GRAM, ONCE DAILY (QD)
     Dates: start: 20240109, end: 20240113
  4. VENOGLOBULIN [Concomitant]
     Active Substance: HUMAN IMMUNOGLOBULIN G
     Dosage: 20 GRAM, ONCE DAILY (QD)
     Dates: start: 20240205, end: 20240209
  5. VENOGLOBULIN [Concomitant]
     Active Substance: HUMAN IMMUNOGLOBULIN G
     Dosage: 20 GRAM, ONCE DAILY (QD)
     Dates: start: 20240304, end: 20240308
  6. VENOGLOBULIN [Concomitant]
     Active Substance: HUMAN IMMUNOGLOBULIN G
     Dosage: 20 GRAM, ONCE DAILY (QD)
     Dates: start: 20240401, end: 20240405
  7. VENOGLOBULIN [Concomitant]
     Active Substance: HUMAN IMMUNOGLOBULIN G
     Dosage: 20 GRAM, ONCE DAILY (QD)
     Dates: start: 20240507, end: 20240510
  8. VENOGLOBULIN [Concomitant]
     Active Substance: HUMAN IMMUNOGLOBULIN G
     Dosage: 20 GRAM, ONCE DAILY (QD)
     Dates: start: 20240604, end: 20240607
  9. VENOGLOBULIN [Concomitant]
     Active Substance: HUMAN IMMUNOGLOBULIN G
     Dosage: 20 GRAM, ONCE DAILY (QD)
     Dates: start: 20240702, end: 20240705
  10. VENOGLOBULIN [Concomitant]
     Active Substance: HUMAN IMMUNOGLOBULIN G
     Dosage: 20 GRAM, ONCE DAILY (QD)
     Dates: start: 20240730, end: 20240802
  11. VENOGLOBULIN [Concomitant]
     Active Substance: HUMAN IMMUNOGLOBULIN G
     Dosage: 20 GRAM, ONCE DAILY (QD)
     Dates: start: 20240903, end: 20240906
  12. PREDONINE [Concomitant]
     Active Substance: PREDNISOLONE
     Indication: Myasthenia gravis
     Dosage: 9 MILLIGRAM, ONCE DAILY (QD)
     Route: 048
     Dates: end: 20240620
  13. PREDONINE [Concomitant]
     Active Substance: PREDNISOLONE
     Dosage: 8 MILLIGRAM, ONCE DAILY (QD)
     Route: 048
     Dates: start: 20240621

REACTIONS (4)
  - Chronic inflammatory demyelinating polyradiculoneuropathy [Not Recovered/Not Resolved]
  - Injection site pain [Unknown]
  - Headache [Recovered/Resolved]
  - Therapeutic response decreased [Unknown]

NARRATIVE: CASE EVENT DATE: 20240223
